FAERS Safety Report 15355417 (Version 1)
Quarter: 2018Q4

REPORT INFORMATION
  Report Type: Spontaneous
  Country: IT (occurrence: IT)
  Receive Date: 20180906
  Receipt Date: 20180906
  Transmission Date: 20190204
  Serious: Yes (Hospitalization)
  Sender: FDA-Public Use
  Company Number: IT-AUROBINDO-AUR-APL-2018-044471

PATIENT
  Age: 49 Year
  Sex: Female
  Weight: 66 kg

DRUGS (1)
  1. OXALIPLATINO 5 MG/ML CONCENTRATE FOR SOLUTION FOR INFUSION [Suspect]
     Active Substance: OXALIPLATIN
     Indication: RECTOSIGMOID CANCER
     Dosage: 224 MILLIGRAM, CYCLICAL
     Route: 042
     Dates: start: 20130305, end: 20130305

REACTIONS (2)
  - Paraesthesia oral [Recovered/Resolved]
  - Throat tightness [Recovered/Resolved]

NARRATIVE: CASE EVENT DATE: 20130305
